FAERS Safety Report 5509533-8 (Version None)
Quarter: 2007Q4

REPORT INFORMATION
  Report Type: 
  Country: None (occurrence: None)
  Receive Date: 20071029
  Receipt Date: 20070911
  Transmission Date: 20080405
  Serious: No
  Sender: FDA-Public Use
  Company Number: 013146

PATIENT
  Age: 50 Year
  Sex: Male

DRUGS (3)
  1. PRIALT [Suspect]
     Indication: PROCEDURAL PAIN
     Dosage: 0.02 UG, ONCE/HOUR, INTRATHECAL; 0.06 UG, ONCE/HOUR, INTRATHECAL; 0.07 UG, ONCE/HOUR, INTRATHECAL
     Route: 037
     Dates: end: 20070906
  2. PRIALT [Suspect]
     Indication: PROCEDURAL PAIN
     Dosage: 0.02 UG, ONCE/HOUR, INTRATHECAL; 0.06 UG, ONCE/HOUR, INTRATHECAL; 0.07 UG, ONCE/HOUR, INTRATHECAL
     Route: 037
     Dates: start: 20070725
  3. PRIALT [Suspect]
     Indication: PROCEDURAL PAIN
     Dosage: 0.02 UG, ONCE/HOUR, INTRATHECAL; 0.06 UG, ONCE/HOUR, INTRATHECAL; 0.07 UG, ONCE/HOUR, INTRATHECAL
     Route: 037
     Dates: start: 20070906

REACTIONS (3)
  - NO THERAPEUTIC RESPONSE [None]
  - PAIN [None]
  - PHARMACEUTICAL PRODUCT COMPLAINT [None]
